FAERS Safety Report 7338685-2 (Version None)
Quarter: 2011Q1

REPORT INFORMATION
  Report Type: 
  Country: None (occurrence: None)
  Receive Date: 20110308
  Receipt Date: 20110301
  Transmission Date: 20110831
  Serious: Yes (Hospitalization)
  Sender: FDA-Public Use
  Company Number: A0897783A

PATIENT
  Age: 55 Year
  Sex: Male

DRUGS (5)
  1. VIOXX [Concomitant]
  2. GLUCOTROL XL [Concomitant]
  3. COZAAR [Concomitant]
  4. PRAVACHOL [Concomitant]
  5. AVANDIA [Suspect]
     Dosage: 8MG PER DAY
     Route: 048
     Dates: start: 19990901, end: 20100401

REACTIONS (2)
  - ANGINA UNSTABLE [None]
  - ACUTE MYOCARDIAL INFARCTION [None]
